FAERS Safety Report 24195907 (Version 1)
Quarter: 2024Q3

REPORT INFORMATION
  Report Type: Spontaneous
  Country: FR (occurrence: FR)
  Receive Date: 20240809
  Receipt Date: 20240809
  Transmission Date: 20241017
  Serious: Yes (Life-Threatening)
  Sender: TEVA
  Company Number: None

PATIENT
  Age: 23 Year
  Sex: Male
  Weight: 51 kg

DRUGS (5)
  1. VOGALENE [Suspect]
     Active Substance: METOPIMAZINE
     Indication: Toxicity to various agents
     Route: 048
     Dates: start: 20240313, end: 20240313
  2. ZOLPIDEM [Suspect]
     Active Substance: ZOLPIDEM TARTRATE
     Indication: Toxicity to various agents
     Route: 048
     Dates: start: 20240313, end: 20240313
  3. ALPRAZOLAM [Suspect]
     Active Substance: ALPRAZOLAM
     Indication: Toxicity to various agents
     Route: 048
     Dates: start: 20240313, end: 20240313
  4. TRAMADOL [Suspect]
     Active Substance: TRAMADOL\TRAMADOL HYDROCHLORIDE
     Indication: Toxicity to various agents
     Dosage: TRAMADOL BASE
     Route: 048
     Dates: start: 20240313, end: 20240313
  5. KETAMINE [Suspect]
     Active Substance: KETAMINE
     Indication: Toxicity to various agents
     Dosage: NR,
     Route: 030
     Dates: start: 20240313, end: 20240313

REACTIONS (2)
  - Coma [Recovered/Resolved]
  - Toxicity to various agents [Recovered/Resolved]

NARRATIVE: CASE EVENT DATE: 20240313
